FAERS Safety Report 14149991 (Version 3)
Quarter: 2018Q2

REPORT INFORMATION
  Report Type: Spontaneous
  Country: US (occurrence: US)
  Receive Date: 20171101
  Receipt Date: 20180620
  Transmission Date: 20180711
  Serious: Yes (Hospitalization)
  Sender: FDA-Public Use
  Company Number: US-ACTELION-A-NJ2017-151524

PATIENT
  Age: 64 Year
  Sex: Female

DRUGS (1)
  1. OPSUMIT [Suspect]
     Active Substance: MACITENTAN
     Indication: PULMONARY HYPERTENSION
     Dosage: 10 MG, QD
     Route: 048
     Dates: start: 20161224

REACTIONS (11)
  - Peripheral swelling [Unknown]
  - Dyspnoea [Unknown]
  - Cough [Unknown]
  - Chest pain [Unknown]
  - Swelling [Unknown]
  - Drug dose omission [Unknown]
  - Oedema [Unknown]
  - Sinus congestion [Unknown]
  - Renal disorder [Unknown]
  - Dysphagia [Unknown]
  - Choking sensation [Unknown]

NARRATIVE: CASE EVENT DATE: 201709
